FAERS Safety Report 7219336-4 (Version None)
Quarter: 2011Q1

REPORT INFORMATION
  Report Type: 
  Country: None (occurrence: None)
  Receive Date: 20110111
  Receipt Date: 20110103
  Transmission Date: 20110831
  Serious: Yes (Other)
  Sender: FDA-Public Use
  Company Number: US-PFIZER INC-2010173244

PATIENT
  Sex: Female
  Weight: 60 kg

DRUGS (2)
  1. LISINOPRIL [Concomitant]
     Indication: HYPERTENSION
     Dosage: 10 MG, 1X/DAY
     Dates: start: 20080101
  2. LYRICA [Suspect]
     Indication: NEUROPATHY PERIPHERAL
     Dosage: 50 MG, 1X/DAY
     Route: 048
     Dates: start: 20101214

REACTIONS (8)
  - DRY MOUTH [None]
  - ADVERSE REACTION [None]
  - DIZZINESS [None]
  - HALLUCINATION [None]
  - MALAISE [None]
  - PALPITATIONS [None]
  - DYSPNOEA [None]
  - URINARY INCONTINENCE [None]
